FAERS Safety Report 18164300 (Version 3)
Quarter: 2021Q1

REPORT INFORMATION
  Report Type: Spontaneous
  Country: US (occurrence: US)
  Receive Date: 20200818
  Receipt Date: 20210312
  Transmission Date: 20210419
  Serious: Yes (Other)
  Sender: FDA-Public Use
  Company Number: US-GILEAD-2020-0490121

PATIENT
  Age: 58 Year
  Sex: Female
  Weight: 63.5 kg

DRUGS (51)
  1. TRUVADA [Suspect]
     Active Substance: EMTRICITABINE\TENOFOVIR DISOPROXIL FUMARATE
     Indication: HIV INFECTION
     Dosage: UNK
     Route: 065
     Dates: start: 200604, end: 200608
  2. CHANTIX [Concomitant]
     Active Substance: VARENICLINE TARTRATE
  3. FLUTICASONE. [Concomitant]
     Active Substance: FLUTICASONE
  4. OXYBUTYNIN. [Concomitant]
     Active Substance: OXYBUTYNIN CHLORIDE
  5. ZOLPIDEM [Concomitant]
     Active Substance: ZOLPIDEM TARTRATE
  6. ATRIPLA [Suspect]
     Active Substance: EFAVIRENZ\EMTRICITABINE\TENOFOVIR DISOPROXIL FUMARATE
     Dosage: UNK
     Route: 048
     Dates: start: 200608, end: 201609
  7. TRIUMEQ [Concomitant]
     Active Substance: ABACAVIR SULFATE\DOLUTEGRAVIR SODIUM\LAMIVUDINE
  8. LIPITOR [Concomitant]
     Active Substance: ATORVASTATIN CALCIUM
  9. MEGACE [Concomitant]
     Active Substance: MEGESTROL ACETATE
  10. PAXIL [Concomitant]
     Active Substance: PAROXETINE HYDROCHLORIDE
  11. PRAVASTATIN. [Concomitant]
     Active Substance: PRAVASTATIN
  12. PROMETHAZINE [Concomitant]
     Active Substance: PROMETHAZINE HYDROCHLORIDE
  13. SMZ?TMP [Concomitant]
     Active Substance: SULFAMETHOXAZOLE\TRIMETHOPRIM
  14. TRAZODONE [Concomitant]
     Active Substance: TRAZODONE HYDROCHLORIDE
  15. UNIVASC [Concomitant]
     Active Substance: MOEXIPRIL HYDROCHLORIDE
  16. AMOXICILLIN. [Concomitant]
     Active Substance: AMOXICILLIN
  17. ATROVENT [Concomitant]
     Active Substance: IPRATROPIUM BROMIDE
  18. AZITHROMYCIN ANHYDROUS. [Concomitant]
     Active Substance: AZITHROMYCIN ANHYDROUS
  19. HYDROXYZINE [Concomitant]
     Active Substance: HYDROXYZINE HYDROCHLORIDE
  20. LEVOFLOXACIN. [Concomitant]
     Active Substance: LEVOFLOXACIN
  21. NICOTINE. [Concomitant]
     Active Substance: NICOTINE
  22. SYMBICORT [Concomitant]
     Active Substance: BUDESONIDE\FORMOTEROL FUMARATE DIHYDRATE
  23. ATRIPLA [Suspect]
     Active Substance: EFAVIRENZ\EMTRICITABINE\TENOFOVIR DISOPROXIL FUMARATE
     Dosage: UNK
     Route: 048
     Dates: start: 2006
  24. CLONAZEPAM. [Concomitant]
     Active Substance: CLONAZEPAM
  25. ESCITALOPRAM [Concomitant]
     Active Substance: ESCITALOPRAM OXALATE
  26. RANITIDINE. [Concomitant]
     Active Substance: RANITIDINE
  27. TIZANIDINE. [Concomitant]
     Active Substance: TIZANIDINE
  28. GENVOYA [Concomitant]
     Active Substance: COBICISTAT\ELVITEGRAVIR\EMTRICITABINE\TENOFOVIR ALAFENAMIDE FUMARATE
  29. BIKTARVY [Concomitant]
     Active Substance: BICTEGRAVIR SODIUM\EMTRICITABINE\TENOFOVIR ALAFENAMIDE FUMARATE
  30. ALBUTEROL [SALBUTAMOL] [Concomitant]
     Active Substance: ALBUTEROL
  31. MEGESTROL [Concomitant]
     Active Substance: MEGESTROL
  32. NASONEX [Concomitant]
     Active Substance: MOMETASONE FUROATE
  33. ATRIPLA [Suspect]
     Active Substance: EFAVIRENZ\EMTRICITABINE\TENOFOVIR DISOPROXIL FUMARATE
     Indication: HIV INFECTION
     Dosage: UNK
     Route: 048
     Dates: start: 201611, end: 201805
  34. ACYCLOVIR [ACICLOVIR] [Concomitant]
     Active Substance: ACYCLOVIR
  35. BUPROPION. [Concomitant]
     Active Substance: BUPROPION
  36. DOXYCYCLINE. [Concomitant]
     Active Substance: DOXYCYCLINE
  37. CIPROFLOXACIN. [Concomitant]
     Active Substance: CIPROFLOXACIN
  38. DULOXETINE. [Concomitant]
     Active Substance: DULOXETINE
  39. METHYLPREDNISOLONE. [Concomitant]
     Active Substance: METHYLPREDNISOLONE
  40. PREDNISONE. [Concomitant]
     Active Substance: PREDNISONE
  41. PROVENTIL HFA [SALBUTAMOL] [Concomitant]
  42. ATROVENT HFA [Concomitant]
     Active Substance: IPRATROPIUM BROMIDE
  43. GEODON [Concomitant]
     Active Substance: ZIPRASIDONE HYDROCHLORIDE\ZIPRASIDONE MESYLATE
  44. LORATADINE. [Concomitant]
     Active Substance: LORATADINE
  45. MIRTAZAPINE. [Concomitant]
     Active Substance: MIRTAZAPINE
  46. PROAIR HFA [Concomitant]
     Active Substance: ALBUTEROL SULFATE
  47. SERTRALINE [Concomitant]
     Active Substance: SERTRALINE HYDROCHLORIDE
  48. ATORVASTATIN [Concomitant]
     Active Substance: ATORVASTATIN
  49. CEPHALEXINE [Concomitant]
     Active Substance: CEPHALEXIN
  50. MELOXICAM. [Concomitant]
     Active Substance: MELOXICAM
  51. MUPIROCIN. [Concomitant]
     Active Substance: MUPIROCIN

REACTIONS (8)
  - Chronic kidney disease [Not Recovered/Not Resolved]
  - Anhedonia [Unknown]
  - Emotional distress [Unknown]
  - Rib fracture [Not Recovered/Not Resolved]
  - Osteoporosis [Not Recovered/Not Resolved]
  - Anxiety [Unknown]
  - Pain [Unknown]
  - Spinal osteoarthritis [Unknown]

NARRATIVE: CASE EVENT DATE: 20170303
